FAERS Safety Report 19584874 (Version 1)
Quarter: 2021Q3

REPORT INFORMATION
  Report Type: Report from Study
  Country: US (occurrence: US)
  Receive Date: 20210720
  Receipt Date: 20210720
  Transmission Date: 20211014
  Serious: Yes (Life-Threatening)
  Sender: FDA-Public Use
  Company Number: US-MYLANLABS-2021M1044398

PATIENT
  Sex: Female

DRUGS (3)
  1. PACLITAXEL. [Suspect]
     Active Substance: PACLITAXEL
     Indication: OVARIAN CANCER
     Dosage: 80 MILLIGRAM/SQ. METER, QW (ADMINISTERED IN A 28DAY CYCLE)
     Route: 042
  2. BEVACIZUMAB. [Suspect]
     Active Substance: BEVACIZUMAB
     Indication: OVARIAN CANCER
     Dosage: 5 MILLIGRAM/KILOGRAM, BIWEEKLY
     Route: 042
  3. SORAFENIB [Suspect]
     Active Substance: SORAFENIB
     Indication: OVARIAN CANCER
     Dosage: 200 MILLIGRAM, BID (ADMINISTERED FOR 7 DAYS PER WEEK (7/7)
     Route: 048

REACTIONS (1)
  - Cerebrovascular accident [Unknown]
